FAERS Safety Report 10258568 (Version 4)
Quarter: 2015Q1

REPORT INFORMATION
  Report Type: Spontaneous
  Country: IT (occurrence: IT)
  Receive Date: 20140625
  Receipt Date: 20140721
  Transmission Date: 20150720
  Serious: Yes (Other)
  Sender: FDA-Public Use
  Company Number: IT-MYLANLABS-2014S1014176

PATIENT
  Age: 51 Year
  Sex: Female

DRUGS (9)
  1. MELOXICAM. [Interacting]
     Active Substance: MELOXICAM
     Indication: MUSCULOSKELETAL CHEST PAIN
     Dosage: 15 MG DAILY
     Route: 048
     Dates: start: 20101103, end: 20140130
  2. RAMIPRIL. [Interacting]
     Active Substance: RAMIPRIL
     Indication: CARDIAC FAILURE
     Dosage: 2.5 MG DAILY
     Route: 048
     Dates: start: 20130926, end: 20140131
  3. RAMIPRIL. [Interacting]
     Active Substance: RAMIPRIL
     Indication: HYPERTENSION
     Route: 048
     Dates: start: 20140131, end: 20140410
  4. CARDIRENE [Suspect]
     Active Substance: ASPIRIN DL-LYSINE
     Indication: HAEMANGIOMA OF SKIN
     Dosage: 75 MG DAILY
     Route: 048
     Dates: start: 20050426, end: 20140131
  5. RAMIPRIL. [Interacting]
     Active Substance: RAMIPRIL
     Indication: CARDIAC FAILURE
     Route: 048
     Dates: start: 20140131, end: 20140410
  6. RAMIPRIL. [Interacting]
     Active Substance: RAMIPRIL
     Indication: HYPERTENSION
     Dosage: 2.5 MG DAILY
     Route: 048
     Dates: start: 20130926, end: 20140131
  7. CARDIRENE [Suspect]
     Active Substance: ASPIRIN DL-LYSINE
     Indication: PLATELET AGGREGATION INHIBITION
     Dosage: 75 MG DAILY
     Route: 048
     Dates: start: 20050426, end: 20140131
  8. PRAZEPAM [Concomitant]
     Active Substance: PRAZEPAM
     Indication: ANXIETY
     Dosage: ORAL DROPS SOLUTION
  9. ANTRA /00661201/ [Suspect]
     Active Substance: OMEPRAZOLE
     Indication: PROPHYLAXIS AGAINST GASTROINTESTINAL ULCER
     Dosage: 20 MG DAILY
     Route: 048
     Dates: start: 20030310, end: 20140131

REACTIONS (5)
  - Hypertension [Recovered/Resolved]
  - Hyperchlorhydria [Recovered/Resolved]
  - Presyncope [Recovered/Resolved]
  - Abdominal pain upper [Recovered/Resolved]
  - Drug interaction [Recovered/Resolved]

NARRATIVE: CASE EVENT DATE: 20140131
